FAERS Safety Report 11242124 (Version 2)
Quarter: 2016Q1

REPORT INFORMATION
  Report Type: Spontaneous
  Country: US (occurrence: US)
  Receive Date: 20150706
  Receipt Date: 20160301
  Transmission Date: 20160525
  Serious: Yes (Other)
  Sender: FDA-Public Use
  Company Number: US-LUNDBECK-DKLU1112230

PATIENT
  Sex: Female

DRUGS (3)
  1. ADVIL [Concomitant]
     Active Substance: IBUPROFEN
     Indication: HEADACHE
     Route: 065
     Dates: start: 20150428
  2. NORTHERA [Suspect]
     Active Substance: DROXIDOPA
     Indication: HYPOTENSION
     Route: 065
     Dates: start: 20150424
  3. NORTHERA [Suspect]
     Active Substance: DROXIDOPA
     Route: 065

REACTIONS (21)
  - Muscular weakness [Unknown]
  - Loss of consciousness [Unknown]
  - Vomiting [Unknown]
  - Sexual dysfunction [Unknown]
  - Balance disorder [Unknown]
  - Blindness [Unknown]
  - Anxiety [Unknown]
  - Headache [Recovering/Resolving]
  - Urinary incontinence [Unknown]
  - Vision blurred [Unknown]
  - Hypoaesthesia [Unknown]
  - Pain in extremity [Unknown]
  - Speech disorder [Unknown]
  - Gait disturbance [Unknown]
  - Tremor [Unknown]
  - Sleep disorder [Unknown]
  - Fatigue [Unknown]
  - Dizziness [Unknown]
  - Dysarthria [Unknown]
  - Memory impairment [Unknown]
  - Disturbance in attention [Unknown]
